FAERS Safety Report 8379879-7 (Version None)
Quarter: 2012Q2

REPORT INFORMATION
  Report Type: 
  Country: None (occurrence: None)
  Receive Date: 20120523
  Receipt Date: 20120522
  Transmission Date: 20120825
  Serious: Yes (Hospitalization)
  Sender: FDA-Public Use
  Company Number: SK-PFIZER INC-2012123502

PATIENT
  Age: 61 Year
  Sex: Male

DRUGS (2)
  1. ATORVASTATIN CALCIUM [Suspect]
     Indication: EMBOLIC CEREBRAL INFARCTION
     Dosage: 80MG, 1X/DAY
     Route: 048
     Dates: start: 20120330, end: 20120417
  2. PRADAXA [Concomitant]
     Indication: EMBOLIC CEREBRAL INFARCTION
     Dosage: 150MG, 2X/DAY
     Route: 048
     Dates: start: 20120330, end: 20120417

REACTIONS (1)
  - LIVER DISORDER [None]
